FAERS Safety Report 20431255 (Version 1)
Quarter: 2022Q1

REPORT INFORMATION
  Report Type: Spontaneous
  Country: US (occurrence: None)
  Receive Date: 20220203
  Receipt Date: 20220203
  Transmission Date: 20220423
  Serious: No
  Sender: FDA-Public Use
  Company Number: None

PATIENT
  Sex: Female

DRUGS (1)
  1. DUPIXENT [Suspect]
     Active Substance: DUPILUMAB
     Indication: Asthma
     Dosage: OTHER FREQUENCY : LOADING DOSE;?
     Route: 058
     Dates: start: 20220201

REACTIONS (2)
  - Wrong technique in product usage process [None]
  - Product dose omission in error [None]

NARRATIVE: CASE EVENT DATE: 20220202
